FAERS Safety Report 10193441 (Version 1)
Quarter: 2014Q2

REPORT INFORMATION
  Report Type: Spontaneous
  Country: US (occurrence: US)
  Receive Date: 20140524
  Receipt Date: 20140524
  Transmission Date: 20141212
  Serious: No
  Sender: FDA-Public Use
  Company Number: US-SA-2013SA123056

PATIENT
  Age: 61 Year
  Sex: Female
  Weight: 84.82 kg

DRUGS (3)
  1. LANTUS SOLOSTAR [Suspect]
     Indication: TYPE 2 DIABETES MELLITUS
     Dosage: PATIENT TAKES 47 UNITS IN MORNING AND 10 UNITS IN EVENING
     Route: 051
     Dates: start: 2010
  2. SOLOSTAR [Concomitant]
     Dates: start: 2010
  3. HUMALOG [Concomitant]
     Route: 065

REACTIONS (3)
  - Malaise [Unknown]
  - Stress [Unknown]
  - Drug dose omission [Unknown]
